FAERS Safety Report 6762396-5 (Version None)
Quarter: 2010Q2

REPORT INFORMATION
  Report Type: 
  Country: None (occurrence: None)
  Receive Date: 20100609
  Receipt Date: 20100602
  Transmission Date: 20101027
  Serious: Yes (Hospitalization)
  Sender: FDA-Public Use
  Company Number: US-SANOFI-AVENTIS-2010SA027564

PATIENT
  Sex: Female
  Weight: 136.07 kg

DRUGS (9)
  1. LANTUS [Suspect]
     Indication: DIABETES MELLITUS
     Dosage: DOSE:60 UNIT(S)
     Route: 058
     Dates: start: 20060101
  2. LANTUS [Suspect]
     Dosage: DOSE:60 UNIT(S)
     Route: 058
     Dates: start: 20100509
  3. LANTUS [Suspect]
     Dosage: DOSE:67 UNIT(S)
     Route: 058
  4. SOLOSTAR [Suspect]
     Indication: DIABETES MELLITUS
     Dates: start: 20100509
  5. HUMALOG [Concomitant]
  6. METFORMIN HCL [Concomitant]
  7. METOPROLOL TARTRATE [Concomitant]
  8. COUMADIN [Concomitant]
  9. VALSARTAN [Concomitant]
     Dosage: 320/12.5 X 1

REACTIONS (2)
  - INJECTION SITE PAIN [None]
  - THROMBOSIS [None]
